FAERS Safety Report 17240996 (Version 1)
Quarter: 2020Q1

REPORT INFORMATION
  Report Type: Report from Study
  Country: None (occurrence: US)
  Receive Date: 20200107
  Receipt Date: 20200107
  Transmission Date: 20200409
  Serious: Yes (Other)
  Sender: FDA-Public Use
  Company Number: US-ABBVIE-19K-163-3152197-00

PATIENT
  Age: 80 Year
  Sex: Female

DRUGS (2)
  1. IMBRUVICA [Suspect]
     Active Substance: IBRUTINIB
     Indication: WALDENSTROM^S MACROGLOBULINAEMIA
     Dosage: 280 MG, QD
     Route: 048
     Dates: start: 20190619, end: 20190708
  2. IMBRUVICA [Suspect]
     Active Substance: IBRUTINIB
     Route: 048
     Dates: start: 20180501

REACTIONS (11)
  - Incorrect dose administered [Unknown]
  - Vomiting [Unknown]
  - Dehydration [Unknown]
  - Fall [Unknown]
  - Impaired healing [Not Recovered/Not Resolved]
  - Contusion [Recovering/Resolving]
  - Dizziness postural [Not Recovered/Not Resolved]
  - Weight decreased [Unknown]
  - Migraine [Unknown]
  - Syncope [Unknown]
  - Skin exfoliation [Not Recovered/Not Resolved]

NARRATIVE: CASE EVENT DATE: 20190619
